FAERS Safety Report 6389366-3 (Version None)
Quarter: 2009Q4

REPORT INFORMATION
  Report Type: 
  Country: None (occurrence: None)
  Receive Date: 20091006
  Receipt Date: 20090924
  Transmission Date: 20100525
  Serious: Yes (Hospitalization)
  Sender: FDA-Public Use
  Company Number: US-JNJFOC-20090907769

PATIENT
  Age: 3 Month
  Sex: Female
  Weight: 4.54 kg

DRUGS (2)
  1. TYLENOL (CAPLET) [Suspect]
     Route: 048
     Dates: start: 20090908, end: 20090909
  2. TYLENOL (CAPLET) [Suspect]
     Indication: IMMUNISATION
     Dosage: PER PHYSICIAN
     Route: 048
     Dates: start: 20090908, end: 20090909

REACTIONS (2)
  - TRANSMISSION OF AN INFECTIOUS AGENT VIA A MEDICINAL PRODUCT [None]
  - UPPER RESPIRATORY TRACT INFECTION [None]
